FAERS Safety Report 12711230 (Version 4)
Quarter: 2025Q1

REPORT INFORMATION
  Report Type: Spontaneous
  Country: CA (occurrence: None)
  Receive Date: 20160902
  Receipt Date: 20250123
  Transmission Date: 20250409
  Serious: Yes (Other)
  Sender: ORION
  Company Number: CA-ORION CORPORATION ORION PHARMA-TREX2016-1554

PATIENT
  Age: 60 Year
  Sex: Female

DRUGS (19)
  1. METHOTREXATE [Suspect]
     Active Substance: METHOTREXATE
     Indication: Rheumatoid arthritis
     Dates: start: 2008
  2. METHOTREXATE [Suspect]
     Active Substance: METHOTREXATE
  3. METHOTREXATE [Suspect]
     Active Substance: METHOTREXATE
     Dates: start: 2008
  4. METHOTREXATE [Suspect]
     Active Substance: METHOTREXATE
  5. ENBREL [Suspect]
     Active Substance: ETANERCEPT
     Indication: Rheumatoid arthritis
  6. ENBREL [Suspect]
     Active Substance: ETANERCEPT
     Dates: start: 2011, end: 2016
  7. PLAQUENIL [Suspect]
     Active Substance: HYDROXYCHLOROQUINE SULFATE
     Indication: Rheumatoid arthritis
     Dates: start: 2008
  8. PLAQUENIL [Suspect]
     Active Substance: HYDROXYCHLOROQUINE SULFATE
     Dates: start: 2008, end: 2016
  9. LEFLUNOMIDE [Suspect]
     Active Substance: LEFLUNOMIDE
     Indication: Product used for unknown indication
     Dates: start: 2010, end: 2011
  10. XELJANZ XR [Concomitant]
     Active Substance: TOFACITINIB CITRATE
     Indication: Rheumatoid arthritis
     Dates: start: 202407
  11. FOLIC ACID [Concomitant]
     Active Substance: FOLIC ACID
  12. NAPROSYN [Concomitant]
     Active Substance: NAPROXEN
  13. LOSEC [Concomitant]
     Active Substance: OMEPRAZOLE
  14. CITALOPRAM [Concomitant]
     Active Substance: CITALOPRAM
  15. HYDROXYCHLOROQUINE [Concomitant]
     Active Substance: HYDROXYCHLOROQUINE
     Dates: start: 2008
  16. RISEDRONATE SODIUM [Concomitant]
     Active Substance: RISEDRONATE SODIUM
     Dates: start: 2007, end: 2009
  17. ALENDRONATE [Concomitant]
     Active Substance: ALENDRONATE SODIUM
     Dates: start: 2007, end: 2014
  18. ZOLEDRONIC ACID [Concomitant]
     Active Substance: ZOLEDRONIC ACID
     Indication: Osteoporosis
     Dates: start: 2022
  19. XELJANZ [Concomitant]
     Active Substance: TOFACITINIB CITRATE
     Indication: Rheumatoid arthritis
     Dates: start: 20160426

REACTIONS (3)
  - Therapy non-responder [Unknown]
  - Rheumatoid arthritis [Unknown]
  - Herpes zoster [Not Recovered/Not Resolved]

NARRATIVE: CASE EVENT DATE: 20150407
